FAERS Safety Report 5879707-5 (Version None)
Quarter: 2008Q3

REPORT INFORMATION
  Report Type: 
  Country: None (occurrence: None)
  Receive Date: 20080911
  Receipt Date: 20080911
  Transmission Date: 20090109
  Serious: No
  Sender: FDA-Public Use
  Company Number: None

PATIENT
  Sex: Female
  Weight: 78 kg

DRUGS (3)
  1. TEMOZOLOMIDE [Suspect]
     Dosage: 2940 MG
  2. DEXAMETHASONE TAB [Concomitant]
  3. ONDANSETRON [Concomitant]

REACTIONS (1)
  - THROMBOCYTOPENIA [None]
